FAERS Safety Report 11451027 (Version 1)
Quarter: 2015Q3

REPORT INFORMATION
  Report Type: Spontaneous
  Country: US (occurrence: US)
  Receive Date: 20150903
  Receipt Date: 20150903
  Transmission Date: 20151125
  Serious: No
  Sender: FDA-Public Use
  Company Number: US-ROCHE-1039834

PATIENT
  Sex: Female
  Weight: 82.63 kg

DRUGS (7)
  1. PEGASYS [Suspect]
     Active Substance: PEGINTERFERON ALFA-2A
     Indication: HEPATITIS C
     Route: 058
     Dates: start: 20110805, end: 20120126
  2. PROZAC [Concomitant]
     Active Substance: FLUOXETINE HYDROCHLORIDE
     Indication: DEPRESSION
     Route: 048
  3. RIBAVIRIN. [Suspect]
     Active Substance: RIBAVIRIN
     Indication: HEPATITIS C
     Route: 048
     Dates: start: 20110805, end: 20120126
  4. LISINOPRIL. [Concomitant]
     Active Substance: LISINOPRIL
     Indication: HYPERTENSION
     Route: 048
  5. WELLBUTRIN [Concomitant]
     Active Substance: BUPROPION HYDROCHLORIDE
     Indication: DEPRESSION
     Route: 048
  6. INCIVEK [Concomitant]
     Active Substance: TELAPREVIR
     Indication: HEPATITIS C
     Dosage: 2 DF FOR 12 WKS
     Route: 048
     Dates: start: 20110805
  7. PRILOSEC [Concomitant]
     Active Substance: OMEPRAZOLE MAGNESIUM

REACTIONS (9)
  - Abdominal distension [Unknown]
  - Diarrhoea [Unknown]
  - Liver function test abnormal [Recovering/Resolving]
  - Nausea [Unknown]
  - Vomiting [Unknown]
  - Depression [Unknown]
  - Alanine aminotransferase increased [Unknown]
  - Anxiety [Unknown]
  - Fatigue [Unknown]
